FAERS Safety Report 12167853 (Version 1)
Quarter: 2016Q1

REPORT INFORMATION
  Report Type: Spontaneous
  Country: US (occurrence: None)
  Receive Date: 20160309
  Receipt Date: 20160309
  Transmission Date: 20160526
  Serious: No
  Sender: FDA-Public Use
  Company Number: None

PATIENT
  Age: 67 Year
  Sex: Female
  Weight: 53.07 kg

DRUGS (16)
  1. PROLIA [Suspect]
     Active Substance: DENOSUMAB
     Indication: OSTEOPOROSIS
     Dosage: EVERY 6 MONTHS, INJECTION BY RN
     Dates: start: 20121223
  2. INSULIN PAMP - INSULIN [Concomitant]
  3. LORATADINE. [Concomitant]
     Active Substance: LORATADINE
  4. ASPIRIN. [Concomitant]
     Active Substance: ASPIRIN
  5. CALCIUM [Concomitant]
     Active Substance: CALCIUM
  6. VITAMIN C [Concomitant]
     Active Substance: ASCORBIC ACID
  7. LEVOTHYROXIN [Concomitant]
     Active Substance: LEVOTHYROXINE
  8. PRAVASTATIN [Concomitant]
     Active Substance: PRAVASTATIN\PRAVASTATIN SODIUM
  9. SERTRALINE [Concomitant]
     Active Substance: SERTRALINE HYDROCHLORIDE
  10. VITAMIN D3 [Concomitant]
     Active Substance: CHOLECALCIFEROL
  11. PROLIA [Suspect]
     Active Substance: DENOSUMAB
     Indication: BONE DISORDER
     Dosage: EVERY 6 MONTHS, INJECTION BY RN
     Dates: start: 20121223
  12. LISINOPRIL. [Concomitant]
     Active Substance: LISINOPRIL
  13. DAILY MULTI VITAMIN [Concomitant]
  14. MAGNESIUM [Concomitant]
     Active Substance: MAGNESIUM
  15. COD LIVER OIL [Concomitant]
     Active Substance: COD LIVER OIL
  16. FISH OIL [Concomitant]
     Active Substance: FISH OIL

REACTIONS (5)
  - Vertigo [None]
  - Nausea [None]
  - Balance disorder [None]
  - Ear infection [None]
  - Vomiting [None]

NARRATIVE: CASE EVENT DATE: 201510
